FAERS Safety Report 19126566 (Version 1)
Quarter: 2021Q2

REPORT INFORMATION
  Report Type: Spontaneous
  Country: US (occurrence: US)
  Receive Date: 20210413
  Receipt Date: 20210413
  Transmission Date: 20210717
  Serious: Yes (Other)
  Sender: FDA-Public Use
  Company Number: US-BLUEPRINT MEDICINES CORPORATION-SP-US-2021-000471

PATIENT
  Age: 67 Year
  Sex: Female

DRUGS (2)
  1. AYVAKIT [Suspect]
     Active Substance: AVAPRITINIB
     Indication: GASTROINTESTINAL STROMAL TUMOUR
     Dosage: TAKE 1 TABLET (300 MG) BY MOUTH FOR TWO DAYS THEN OFF FOR ONE DAY AND CONTINUE CYCLE NO BREAK
     Route: 048
     Dates: start: 20200620
  2. AYVAKIT [Suspect]
     Active Substance: AVAPRITINIB
     Dosage: TAKE 1 TABLET (300 MG) BY MOUTH FOR TWO DAYS THEN OFF FOR ONE DAY AND CONTINUE CYCLE NO BREAK
     Route: 048
     Dates: start: 20200620

REACTIONS (2)
  - Cataract [Recovered/Resolved]
  - Off label use [Unknown]

NARRATIVE: CASE EVENT DATE: 20200620
